FAERS Safety Report 19268403 (Version 1)
Quarter: 2021Q2

REPORT INFORMATION
  Report Type: Spontaneous
  Country: US (occurrence: US)
  Receive Date: 20210517
  Receipt Date: 20210517
  Transmission Date: 20210717
  Serious: Yes (Life-Threatening, Hospitalization, Disabling, Other)
  Sender: FDA-Public Use
  Company Number: None

PATIENT
  Age: 39 Year
  Sex: Male
  Weight: 78.3 kg

DRUGS (12)
  1. XCOPRI [Suspect]
     Active Substance: CENOBAMATE
     Indication: SEIZURE
     Route: 048
     Dates: start: 20210115, end: 20210407
  2. LEVOXYTHRINE [Concomitant]
  3. TOPAMAX [Concomitant]
     Active Substance: TOPIRAMATE
  4. VITAMIN D [Concomitant]
     Active Substance: VITAMIN D NOS
  5. CITALOPRAM [Concomitant]
     Active Substance: CITALOPRAM HYDROBROMIDE
  6. LAMICTAL [Concomitant]
     Active Substance: LAMOTRIGINE
  7. ZOFRAN [Concomitant]
     Active Substance: ONDANSETRON HYDROCHLORIDE
  8. DEPAKOTE ER [Concomitant]
     Active Substance: DIVALPROEX SODIUM
  9. SEREQUIL  XR [Concomitant]
  10. REGLAN [Concomitant]
     Active Substance: METOCLOPRAMIDE HYDROCHLORIDE
  11. FELBATOL [Concomitant]
     Active Substance: FELBAMATE
  12. DOCULASE [Concomitant]

REACTIONS (6)
  - Nervous system disorder [None]
  - Constipation [None]
  - Neurogenic bowel [None]
  - Nausea [None]
  - Vomiting [None]
  - Gastric disorder [None]

NARRATIVE: CASE EVENT DATE: 20210218
